FAERS Safety Report 8076133-8 (Version None)
Quarter: 2012Q1

REPORT INFORMATION
  Report Type: 
  Country: None (occurrence: None)
  Receive Date: 20120127
  Receipt Date: 20111012
  Transmission Date: 20120608
  Serious: No
  Sender: FDA-Public Use
  Company Number: US-GLAXOSMITHKLINE-A0949011A

PATIENT
  Age: 41 Year
  Sex: Female
  Weight: 77.3 kg

DRUGS (2)
  1. PRISTIQ [Suspect]
     Indication: DEPRESSION
     Dosage: 50MG PER DAY
     Route: 048
     Dates: start: 20081201, end: 20110820
  2. WELLBUTRIN [Suspect]
     Indication: DEPRESSION
     Dosage: 150MG PER DAY
     Route: 048
     Dates: start: 20110610

REACTIONS (7)
  - BURNING SENSATION [None]
  - WITHDRAWAL SYNDROME [None]
  - EMOTIONAL POVERTY [None]
  - CRYING [None]
  - VASOSPASM [None]
  - NAUSEA [None]
  - FEELING ABNORMAL [None]
